FAERS Safety Report 9105925 (Version 1)
Quarter: 2013Q1

REPORT INFORMATION
  Report Type: Spontaneous
  Country: IE (occurrence: IE)
  Receive Date: 20130220
  Receipt Date: 20130220
  Transmission Date: 20140127
  Serious: Yes (Hospitalization)
  Sender: FDA-Public Use
  Company Number: IE-ELI_LILLY_AND_COMPANY-IE201302002948

PATIENT
  Age: 78 Year
  Sex: Female

DRUGS (9)
  1. FORSTEO [Suspect]
     Indication: OSTEOPOROSIS
     Dosage: 20 UG, QD
     Route: 058
     Dates: start: 20110707
  2. OXYCONTIN [Concomitant]
  3. OSTEOFOS D3 [Concomitant]
  4. FOLATE [Concomitant]
  5. LOSEC [Concomitant]
  6. NORTEM [Concomitant]
  7. SENOKOT [Concomitant]
  8. CYMBALTA [Concomitant]
  9. PARACETAMOL [Concomitant]

REACTIONS (1)
  - Fall [Not Recovered/Not Resolved]
